FAERS Safety Report 18526183 (Version 1)
Quarter: 2020Q4

REPORT INFORMATION
  Report Type: Spontaneous
  Country: PH (occurrence: PH)
  Receive Date: 20201120
  Receipt Date: 20201120
  Transmission Date: 20210114
  Serious: Yes (Death, Other)
  Sender: FDA-Public Use
  Company Number: PH-ASTELLAS-2020US035675

PATIENT
  Age: 82 Year
  Sex: Male

DRUGS (3)
  1. XTANDI [Suspect]
     Active Substance: ENZALUTAMIDE
     Indication: PROSTATE CANCER
     Dosage: 4 DF (40MG), ONCE DAILY
     Route: 048
  2. ELIGARD [Concomitant]
     Active Substance: LEUPROLIDE ACETATE
     Indication: PRODUCT USED FOR UNKNOWN INDICATION
     Dosage: 22.5 MG, (EVERY 3 MONTHS)
     Route: 065
     Dates: start: 201702
  3. XTANDI [Suspect]
     Active Substance: ENZALUTAMIDE
     Dosage: 1 DF (40MG), ONCE DAILY
     Route: 048
     Dates: start: 202002, end: 202010

REACTIONS (5)
  - Malignant neoplasm progression [Fatal]
  - Type 2 diabetes mellitus [Fatal]
  - Decreased appetite [Unknown]
  - Intentional product use issue [Unknown]
  - Asthenia [Unknown]

NARRATIVE: CASE EVENT DATE: 202002
